FAERS Safety Report 10248873 (Version 1)
Quarter: 2014Q2

REPORT INFORMATION
  Report Type: Spontaneous
  Country: US (occurrence: None)
  Receive Date: 20140618
  Receipt Date: 20140618
  Transmission Date: 20141212
  Serious: Yes (Other)
  Sender: FDA-Public Use
  Company Number: None

PATIENT
  Age: 38 Year
  Sex: Female

DRUGS (2)
  1. LAMOTRIGINE [Suspect]
     Indication: BIPOLAR DISORDER
     Route: 048
  2. LAMOTRIGINE [Suspect]
     Route: 048

REACTIONS (4)
  - Irritability [None]
  - Intentional overdose [None]
  - Drug effect decreased [None]
  - Product substitution issue [None]
